FAERS Safety Report 21399477 (Version 1)
Quarter: 2022Q4

REPORT INFORMATION
  Report Type: Report from Study
  Country: MX (occurrence: MX)
  Receive Date: 20221001
  Receipt Date: 20221001
  Transmission Date: 20230113
  Serious: Yes (Death, Other)
  Sender: FDA-Public Use
  Company Number: MX-NOVARTISPH-NVSC2022MX222240

PATIENT
  Age: 91 Year
  Sex: Female
  Weight: 47 kg

DRUGS (1)
  1. EXELON [Suspect]
     Active Substance: RIVASTIGMINE TARTRATE
     Indication: Dementia Alzheimer^s type
     Dosage: UNK, QD (EXTENDED RELEASE)
     Route: 062

REACTIONS (4)
  - Multiple organ dysfunction syndrome [Fatal]
  - Pneumonia [Fatal]
  - COVID-19 [Fatal]
  - Peritonitis [Fatal]

NARRATIVE: CASE EVENT DATE: 20220201
